FAERS Safety Report 7732097-5 (Version None)
Quarter: 2011Q3

REPORT INFORMATION
  Report Type: 
  Country: None (occurrence: None)
  Receive Date: 20110906
  Receipt Date: 20110808
  Transmission Date: 20111222
  Serious: No
  Sender: FDA-Public Use
  Company Number: US-AMGEN-USASP2011031019

PATIENT
  Age: 86 Year
  Sex: Female
  Weight: 59.41 kg

DRUGS (10)
  1. HYDROCHLOROTHIAZIDE [Concomitant]
  2. PROPRANOLOL [Concomitant]
  3. MICARDIS HCT [Concomitant]
  4. PROLIA [Suspect]
     Indication: OSTEOPOROSIS POSTMENOPAUSAL
     Dosage: 60 MG, Q6MO
     Route: 058
     Dates: start: 20110418
  5. CITRACAL                           /00471001/ [Concomitant]
  6. ASPIRIN [Concomitant]
  7. AMLODIPINE [Concomitant]
  8. SYNTHROID [Concomitant]
  9. CELEBREX [Concomitant]
  10. MULTI-VITAMINS [Concomitant]

REACTIONS (5)
  - ERYTHEMA [None]
  - DYSURIA [None]
  - PRURITUS [None]
  - BURNING SENSATION [None]
  - FEELING HOT [None]
